FAERS Safety Report 7815079-4 (Version None)
Quarter: 2011Q4

REPORT INFORMATION
  Report Type: 
  Country: None (occurrence: None)
  Receive Date: 20111014
  Receipt Date: 20111014
  Transmission Date: 20120403
  Serious: Yes (Other)
  Sender: FDA-Public Use
  Company Number: None

PATIENT
  Age: 76 Year
  Sex: Female
  Weight: 56.245 kg

DRUGS (1)
  1. CYMBALTA [Suspect]
     Indication: DEPRESSION
     Dates: start: 20111006, end: 20111010

REACTIONS (4)
  - DIARRHOEA [None]
  - PANCREATITIS [None]
  - ABDOMINAL TENDERNESS [None]
  - GASTROINTESTINAL SOUNDS ABNORMAL [None]
